FAERS Safety Report 17253925 (Version 2)
Quarter: 2020Q1

REPORT INFORMATION
  Report Type: Spontaneous
  Country: DE (occurrence: DE)
  Receive Date: 20200109
  Receipt Date: 20200211
  Transmission Date: 20200409
  Serious: Yes (Death, Other)
  Sender: FDA-Public Use
  Company Number: DE-MYLANLABS-2020M1002696

PATIENT
  Age: 66 Year
  Sex: Male

DRUGS (6)
  1. PEMETREXED. [Suspect]
     Active Substance: PEMETREXED
     Dosage: UNK, (1ST LINE + MAINTENANCE; 19 CYCLES)
     Route: 065
     Dates: start: 201511, end: 201612
  2. CISPLATIN. [Suspect]
     Active Substance: CISPLATIN
     Indication: LUNG ADENOCARCINOMA
     Dosage: 1ST LINE; 6 CYCLES
     Route: 065
     Dates: start: 201506, end: 201511
  3. DOCETAXEL. [Suspect]
     Active Substance: DOCETAXEL
     Indication: LUNG ADENOCARCINOMA
     Dosage: 75MG/M2 D1; 3RD LINE, Q3W
     Route: 065
     Dates: start: 201901
  4. NINTEDANIB [Suspect]
     Active Substance: NINTEDANIB
     Indication: LUNG ADENOCARCINOMA
     Dosage: 200 MILLIGRAM, ONCE IN THE MORNING ANDONCE IN THE EVENING, 3RD LINE
     Route: 065
     Dates: start: 201901
  5. PEMETREXED. [Suspect]
     Active Substance: PEMETREXED
     Indication: LUNG ADENOCARCINOMA
     Dosage: 1ST LINE + MAINTENANCE; 6 CYCLES
     Dates: start: 201507, end: 201612
  6. KEYTRUDA [Suspect]
     Active Substance: PEMBROLIZUMAB
     Indication: LUNG ADENOCARCINOMA
     Dosage: 2MG/KG BODY WEIGHT, 2ND LINE
     Route: 065
     Dates: start: 201701, end: 201901

REACTIONS (3)
  - Malignant neoplasm progression [Unknown]
  - Coronary artery disease [Fatal]
  - Arteriosclerosis [Fatal]

NARRATIVE: CASE EVENT DATE: 201612
